FAERS Safety Report 25117944 (Version 2)
Quarter: 2025Q2

REPORT INFORMATION
  Report Type: Report from Study
  Country: US (occurrence: US)
  Receive Date: 20250325
  Receipt Date: 20250408
  Transmission Date: 20250717
  Serious: Yes (Other)
  Sender: TAKEDA
  Company Number: US-TAKEDA-2025TUS007094

PATIENT
  Sex: Male

DRUGS (9)
  1. FRUQUINTINIB [Suspect]
     Active Substance: FRUQUINTINIB
     Indication: Rectal cancer
  2. ELIQUIS [Concomitant]
     Active Substance: APIXABAN
  3. AMITRIPTYLINE [Concomitant]
     Active Substance: AMITRIPTYLINE
  4. METFORMIN [Concomitant]
     Active Substance: METFORMIN HYDROCHLORIDE
  5. METHOCARBAMOL [Concomitant]
     Active Substance: METHOCARBAMOL
  6. PANTOPRAZOLE [Concomitant]
     Active Substance: PANTOPRAZOLE
  7. ALPRAZOLAM [Concomitant]
     Active Substance: ALPRAZOLAM
  8. MORPHINE SULFATE [Concomitant]
     Active Substance: MORPHINE SULFATE
  9. LUBIPROSTONE [Concomitant]
     Active Substance: LUBIPROSTONE

REACTIONS (6)
  - Rectal cancer [Unknown]
  - Taste disorder [Recovered/Resolved]
  - Dry skin [Not Recovered/Not Resolved]
  - Dysphonia [Not Recovered/Not Resolved]
  - Blood pressure increased [Recovered/Resolved]
  - Stomatitis [Recovered/Resolved]
